FAERS Safety Report 14660738 (Version 1)
Quarter: 2018Q1

REPORT INFORMATION
  Report Type: Spontaneous
  Country: US (occurrence: US)
  Receive Date: 20180320
  Receipt Date: 20180320
  Transmission Date: 20180509
  Serious: Yes (Other)
  Sender: FDA-Public Use
  Company Number: US-WELMEDIX-2018-US-003649

PATIENT
  Sex: Female

DRUGS (1)
  1. SUNBURNT ADVANCED AFTER-SUN GEL, 6 OZ. [Suspect]
     Active Substance: HOMEOPATHICS
     Route: 061

REACTIONS (6)
  - Application site rash [Unknown]
  - Dry skin [Not Recovered/Not Resolved]
  - Application site erythema [Not Recovered/Not Resolved]
  - Dyspnoea [Unknown]
  - Application site swelling [Unknown]
  - Application site pruritus [Unknown]
